FAERS Safety Report 6856537-9 (Version None)
Quarter: 2010Q3

REPORT INFORMATION
  Report Type: 
  Country: None (occurrence: None)
  Receive Date: 20100719
  Receipt Date: 20100708
  Transmission Date: 20110219
  Serious: Yes (Hospitalization)
  Sender: FDA-Public Use
  Company Number: SE-ROCHE-714050

PATIENT
  Age: 70 Year
  Sex: Male

DRUGS (6)
  1. PEGASYS [Suspect]
     Indication: HEPATITIS
     Dosage: FREQUENCY: UNKNOWN, DOSE: 180RGW, FORM: SOL FOR INJ
     Route: 058
     Dates: start: 20100104, end: 20100517
  2. ALVEDON [Concomitant]
  3. NASONEX [Concomitant]
  4. OMEPRAZOLE [Concomitant]
  5. COPEGUS [Concomitant]
     Dosage: DRUG NAME:FCT COPEGUS
  6. XERODENT [Concomitant]

REACTIONS (1)
  - VITREOUS DETACHMENT [None]
